FAERS Safety Report 7603125-2 (Version None)
Quarter: 2011Q3

REPORT INFORMATION
  Report Type: 
  Country: None (occurrence: None)
  Receive Date: 20110711
  Receipt Date: 20110711
  Transmission Date: 20111222
  Serious: Yes (Other)
  Sender: FDA-Public Use
  Company Number: None

PATIENT
  Sex: Female
  Weight: 89.72 kg

DRUGS (1)
  1. ELOXATIN [Suspect]
     Indication: RECTAL CANCER
     Dosage: 101.5 MG Q3WEEKS IV 13:52-14:12
     Route: 042
     Dates: start: 20110706, end: 20110706

REACTIONS (6)
  - PARAESTHESIA ORAL [None]
  - BLOOD PRESSURE DECREASED [None]
  - PARAESTHESIA [None]
  - CHILLS [None]
  - MENTAL STATUS CHANGES [None]
  - HYPERHIDROSIS [None]
